FAERS Safety Report 8551679-4 (Version None)
Quarter: 2012Q3

REPORT INFORMATION
  Report Type: 
  Country: None (occurrence: None)
  Receive Date: 20120723
  Receipt Date: 20120723
  Transmission Date: 20120928
  Serious: Yes (Other)
  Sender: FDA-Public Use
  Company Number: None

PATIENT
  Sex: Female

DRUGS (2)
  1. VEROTANIL [Concomitant]
  2. CLINDAMYCIN [Suspect]
     Indication: INGROWING NAIL
     Dosage: 300MG TWICE A DAY PO
     Route: 048
     Dates: start: 20120719, end: 20120720

REACTIONS (3)
  - THROAT IRRITATION [None]
  - DYSPHAGIA [None]
  - PHARYNGEAL ERYTHEMA [None]
